FAERS Safety Report 5008302-5 (Version None)
Quarter: 2006Q2

REPORT INFORMATION
  Report Type: 
  Country: None (occurrence: None)
  Receive Date: 20060523
  Receipt Date: 20060428
  Transmission Date: 20061013
  Serious: Yes (Other)
  Sender: FDA-Public Use
  Company Number: IT-AMGEN-UK178087

PATIENT
  Sex: Female
  Weight: 54 kg

DRUGS (2)
  1. PALIFERMIN [Suspect]
     Indication: MUCOSAL INFLAMMATION
     Route: 042
     Dates: start: 20060401, end: 20060409
  2. MEPRAL [Concomitant]
     Route: 048
     Dates: start: 20060401, end: 20060422

REACTIONS (7)
  - DIARRHOEA [None]
  - MUCOSAL INFLAMMATION [None]
  - MUCOSAL MEMBRANE HYPERPLASIA [None]
  - NASOPHARYNGEAL DISORDER [None]
  - RASH ERYTHEMATOUS [None]
  - SALIVARY HYPERSECRETION [None]
  - SKIN HYPERPIGMENTATION [None]
